FAERS Safety Report 19269201 (Version 2)
Quarter: 2021Q2

REPORT INFORMATION
  Report Type: Report from Study
  Country: US (occurrence: US)
  Receive Date: 20210518
  Receipt Date: 20210527
  Transmission Date: 20210717
  Serious: Yes (Hospitalization)
  Sender: FDA-Public Use
  Company Number: US-GLAXOSMITHKLINE-US2020GSK201366

PATIENT
  Age: 56 Year
  Sex: Male
  Weight: 75.2 kg

DRUGS (2)
  1. DOSTARLIMAB [Suspect]
     Active Substance: DOSTARLIMAB
     Indication: NEOPLASM
     Dosage: 500 MG
     Route: 042
     Dates: start: 20190130, end: 20190130
  2. DOSTARLIMAB [Suspect]
     Active Substance: DOSTARLIMAB
     Dosage: 1000 MG
     Route: 042
     Dates: start: 20200722, end: 20200722

REACTIONS (1)
  - Chronic obstructive pulmonary disease [Recovered/Resolved with Sequelae]

NARRATIVE: CASE EVENT DATE: 20201005
